FAERS Safety Report 9791821 (Version 1)
Quarter: 2014Q1

REPORT INFORMATION
  Report Type: Spontaneous
  Country: IL (occurrence: IL)
  Receive Date: 20140102
  Receipt Date: 20140102
  Transmission Date: 20141002
  Serious: Yes (Other)
  Sender: FDA-Public Use
  Company Number: IL-JNJFOC-20131215653

PATIENT
  Sex: Male

DRUGS (1)
  1. STELARA [Suspect]
     Indication: CROHN^S DISEASE
     Route: 042

REACTIONS (3)
  - Arthritis [Unknown]
  - Incorrect route of drug administration [Unknown]
  - Off label use [Unknown]
